FAERS Safety Report 19015670 (Version 2)
Quarter: 2021Q1

REPORT INFORMATION
  Report Type: Report from Study
  Country: MX (occurrence: MX)
  Receive Date: 20210317
  Receipt Date: 20210325
  Transmission Date: 20210420
  Serious: Yes (Other)
  Sender: FDA-Public Use
  Company Number: MX-SA-2021SA089257

PATIENT
  Sex: Female

DRUGS (1)
  1. THYROTROPIN ALFA [Suspect]
     Active Substance: THYROTROPIN ALFA
     Indication: THYROID CANCER
     Route: 030

REACTIONS (3)
  - Hypertensive emergency [Unknown]
  - Syncope [Unknown]
  - Dyspnoea [Recovered/Resolved]

NARRATIVE: CASE EVENT DATE: 20210311
